FAERS Safety Report 7338970-4 (Version None)
Quarter: 2011Q1

REPORT INFORMATION
  Report Type: 
  Country: None (occurrence: None)
  Receive Date: 20110308
  Receipt Date: 20110223
  Transmission Date: 20110831
  Serious: Yes (Life-Threatening, Other)
  Sender: FDA-Public Use
  Company Number: FR-ELI_LILLY_AND_COMPANY-FR201102006612

PATIENT
  Sex: Female

DRUGS (2)
  1. CYMBALTA [Suspect]
     Indication: DEPRESSION
     Dosage: 60 MG, DAILY (1/D)
     Route: 048
     Dates: start: 20070901
  2. TAMOXIFENE [Concomitant]
     Indication: BREAST CANCER
     Dosage: 20 MG, DAILY (1/D)
     Route: 048
     Dates: start: 20070601, end: 20101031

REACTIONS (2)
  - RECURRENT CANCER [None]
  - THERAPEUTIC RESPONSE DECREASED [None]
